FAERS Safety Report 9313685 (Version 2)
Quarter: 2013Q4

REPORT INFORMATION
  Report Type: Spontaneous
  Country: IT (occurrence: IT)
  Receive Date: 20130529
  Receipt Date: 20131126
  Transmission Date: 20140711
  Serious: Yes (Other)
  Sender: FDA-Public Use
  Company Number: IT-ROCHE-1197826

PATIENT
  Age: 69 Year
  Sex: Male

DRUGS (3)
  1. AVASTIN [Suspect]
     Indication: COLON CANCER METASTATIC
     Route: 042
     Dates: start: 20130201, end: 20130226
  2. FLUOROURACILE TEVA [Suspect]
     Indication: COLON CANCER METASTATIC
     Route: 065
     Dates: start: 20130201, end: 20130226
  3. OXALIPLATINO [Suspect]
     Indication: COLON CANCER METASTATIC
     Route: 042
     Dates: start: 20130201, end: 20130226

REACTIONS (7)
  - Mucosal inflammation [Not Recovered/Not Resolved]
  - Neutropenia [Not Recovered/Not Resolved]
  - Pyrexia [Not Recovered/Not Resolved]
  - Asthenia [Recovering/Resolving]
  - Dehydration [Recovering/Resolving]
  - Glossitis [Recovering/Resolving]
  - Stomatitis [Recovering/Resolving]
